FAERS Safety Report 23970619 (Version 1)
Quarter: 2024Q2

REPORT INFORMATION
  Report Type: Report from Study
  Country: HU (occurrence: HU)
  Receive Date: 20240613
  Receipt Date: 20240613
  Transmission Date: 20240716
  Serious: Yes (Hospitalization, Disabling, Other)
  Sender: FDA-Public Use
  Company Number: HU-BAXTER-2024BAX019484

PATIENT
  Age: 68 Year
  Sex: Female
  Weight: 58.5 kg

DRUGS (17)
  1. CYCLOPHOSPHAMIDE [Suspect]
     Active Substance: CYCLOPHOSPHAMIDE
     Indication: Diffuse large B-cell lymphoma
     Dosage: 1162.5 MG, EVERY 3 WEEKS
     Route: 042
     Dates: start: 20240321, end: 20240502
  2. EPCORITAMAB [Suspect]
     Active Substance: EPCORITAMAB
     Indication: Diffuse large B-cell lymphoma
     Dosage: 48 MG C1 (STEP-UP), CYCLES 2 - 4 (21-DAY CYCLE, WEEKLY DOSE), C5 - 8 (21-DAY CYCLE, EVERY 3 WEEKS) P
     Route: 058
     Dates: start: 20240321, end: 20240516
  3. VINCRISTINE [Suspect]
     Active Substance: VINCRISTINE
     Indication: Diffuse large B-cell lymphoma
     Dosage: 2 MG, EVERY 3 WEEKS
     Route: 042
     Dates: start: 20240321, end: 20240502
  4. PREDNISONE [Suspect]
     Active Substance: PREDNISONE
     Indication: Diffuse large B-cell lymphoma
     Dosage: 20 MG C1-6, D1-5, EVERY 1 DAYS
     Route: 048
     Dates: start: 20240321, end: 20240506
  5. DOXORUBICIN [Suspect]
     Active Substance: DOXORUBICIN
     Indication: Diffuse large B-cell lymphoma
     Dosage: 77.5 MG, EVERY 3 WEEKS
     Route: 042
     Dates: start: 20240321, end: 20240502
  6. RITUXIMAB [Suspect]
     Active Substance: RITUXIMAB
     Indication: Diffuse large B-cell lymphoma
     Dosage: 581.25 MG, EVERY 3 WEEKS
     Route: 042
     Dates: start: 20240320, end: 20240502
  7. PIPERACILLIN AND TAZOBACTAM [Concomitant]
     Active Substance: PIPERACILLIN SODIUM\TAZOBACTAM SODIUM
     Indication: Upper respiratory tract infection
     Dosage: 4.5 G, 3/DAYS
     Route: 065
     Dates: start: 20240418
  8. BISOPROLOL FUMARATE [Concomitant]
     Active Substance: BISOPROLOL FUMARATE
     Indication: Hypertension
     Dosage: 2.5 MG, EVERY 1 DAYS, (START DATE: FEB-2024)
     Route: 065
  9. COVEREX KOMB [Concomitant]
     Indication: Hypertension
     Dosage: 5/1.25 MG, EVERY 1 DAYS (START DATE: FEB-2024)
     Route: 065
  10. PERINDOPRIL ARGININE [Concomitant]
     Active Substance: PERINDOPRIL ARGININE
     Indication: Hypertension
     Dosage: 5 MG, EVERY 1 DAYS (START DATE: FEB-2024)
     Route: 065
  11. ALLOPURINOL [Concomitant]
     Active Substance: ALLOPURINOL
     Indication: Prophylaxis
     Dosage: 300 MG, EVERY 1 DAYS (START DATE: FEB-2024)
     Route: 065
  12. LORATADINE [Concomitant]
     Active Substance: LORATADINE
     Indication: Prophylaxis
     Dosage: 10 MG, AS NECESSARY
     Route: 065
     Dates: start: 20240502, end: 20240516
  13. LORATADINE [Concomitant]
     Active Substance: LORATADINE
     Indication: Cytokine release syndrome
  14. Paramax Comp [Concomitant]
     Indication: Prophylaxis
     Dosage: 1 G
     Route: 065
     Dates: start: 20240502, end: 20240516
  15. Paramax Comp [Concomitant]
     Indication: Cytokine release syndrome
  16. DEXAMETHASONE [Concomitant]
     Active Substance: DEXAMETHASONE
     Indication: Prophylaxis
     Dosage: 48 MG, 2/DAYS
     Route: 065
     Dates: start: 20240509, end: 20240512
  17. DEXAMETHASONE [Concomitant]
     Active Substance: DEXAMETHASONE
     Indication: Cytokine release syndrome

REACTIONS (2)
  - Femur fracture [Not Recovered/Not Resolved]
  - Injury [Not Recovered/Not Resolved]

NARRATIVE: CASE EVENT DATE: 20240521
